FAERS Safety Report 8308315-1 (Version None)
Quarter: 2012Q2

REPORT INFORMATION
  Report Type: 
  Country: None (occurrence: None)
  Receive Date: 20120424
  Receipt Date: 20120417
  Transmission Date: 20120825
  Serious: Yes (Hospitalization, Other)
  Sender: FDA-Public Use
  Company Number: US-ROCHE-1060591

PATIENT
  Sex: Male
  Weight: 97.156 kg

DRUGS (5)
  1. ZELBORAF [Suspect]
     Dosage: REDUCED
  2. HERBAL SUPPLEMENTS [Concomitant]
  3. TOPROL-XL [Concomitant]
  4. ZELBORAF [Suspect]
     Indication: MALIGNANT MELANOMA
     Route: 048
     Dates: start: 20120330
  5. GREEN TEA [Concomitant]

REACTIONS (2)
  - HEART RATE INCREASED [None]
  - VISION BLURRED [None]
